FAERS Safety Report 5105367-7 (Version None)
Quarter: 2006Q3

REPORT INFORMATION
  Report Type: 
  Country: None (occurrence: None)
  Receive Date: 20060731
  Receipt Date: 20060203
  Transmission Date: 20061208
  Serious: Yes (Death)
  Sender: FDA-Public Use
  Company Number: US-JNJFOC-20060102536

PATIENT
  Age: 91 Year
  Sex: Female
  Weight: 50.3493 kg

DRUGS (7)
  1. RISPERDAL [Suspect]
     Indication: DEMENTIA
     Dosage: 0.25 MG, 2 IN 1 DAY, ORAL
     Route: 048
     Dates: start: 20030925, end: 20051101
  2. TYLENOL (ACETAMINOPHEN) UNSPECIFIED [Concomitant]
  3. LORAZEPAM [Concomitant]
  4. BUMEX [Concomitant]
  5. HALCION [Concomitant]
  6. POTASSIUM CHLORIDE [Concomitant]
  7. LACTULOSE [Concomitant]

REACTIONS (1)
  - CEREBROVASCULAR ACCIDENT [None]
